FAERS Safety Report 5511634-5 (Version None)
Quarter: 2007Q4

REPORT INFORMATION
  Report Type: 
  Country: None (occurrence: None)
  Receive Date: 20071109
  Receipt Date: 20071030
  Transmission Date: 20080405
  Serious: Yes (Other)
  Sender: FDA-Public Use
  Company Number: US-PFIZER INC-2006017991

PATIENT
  Sex: Male
  Weight: 99.8 kg

DRUGS (4)
  1. CAVERJECT [Suspect]
     Indication: ILL-DEFINED DISORDER
  2. INSULIN [Concomitant]
     Route: 058
  3. METFORMIN HCL [Concomitant]
     Route: 048
  4. ENALAPRIL MALEATE [Concomitant]
     Route: 065

REACTIONS (3)
  - BLINDNESS [None]
  - CATARACT [None]
  - DEVICE FAILURE [None]
